FAERS Safety Report 4382234-8 (Version None)
Quarter: 2004Q2

REPORT INFORMATION
  Report Type: 
  Country: None (occurrence: None)
  Receive Date: 20040615
  Receipt Date: 20040602
  Transmission Date: 20050107
  Serious: Yes (Death, Hospitalization)
  Sender: FDA-Public Use
  Company Number: US-JNJFOC-20040600631

PATIENT
  Age: 70 Year
  Sex: Male

DRUGS (4)
  1. IBUPROFEN [Suspect]
     Indication: PAIN
     Dosage: 400 MG, 3 IN 1 DAY, ORAL
     Route: 048
  2. SIMVASTATIN [Concomitant]
  3. ASPIRIN [Concomitant]
  4. METOPROLOL (METOPROLOL) [Concomitant]

REACTIONS (24)
  - ABDOMINAL PAIN LOWER [None]
  - ASPIRATION [None]
  - BLOOD URIC ACID INCREASED [None]
  - CARDIAC FAILURE [None]
  - CATHETER SITE DISCHARGE [None]
  - CONDITION AGGRAVATED [None]
  - CONSTIPATION [None]
  - DIALYSIS [None]
  - ELECTROCARDIOGRAM T WAVE INVERSION [None]
  - FAECAL OCCULT BLOOD POSITIVE [None]
  - FLUID RETENTION [None]
  - GOUT [None]
  - HYPERHIDROSIS [None]
  - HYPERTENSION [None]
  - MEDICATION ERROR [None]
  - OVERDOSE [None]
  - PNEUMONIA [None]
  - PNEUMONITIS [None]
  - PULMONARY OEDEMA [None]
  - RENAL FAILURE [None]
  - RESPIRATORY DISTRESS [None]
  - SODIUM RETENTION [None]
  - TACHYCARDIA [None]
  - VOMITING [None]
